FAERS Safety Report 25995767 (Version 1)
Quarter: 2025Q4

REPORT INFORMATION
  Report Type: Spontaneous
  Country: US (occurrence: US)
  Receive Date: 20251104
  Receipt Date: 20251104
  Transmission Date: 20260117
  Serious: No
  Sender: AMGEN
  Company Number: US-AMGEN-USASP2025213328

PATIENT
  Age: 75 Year
  Sex: Female

DRUGS (1)
  1. REPATHA [Suspect]
     Active Substance: EVOLOCUMAB
     Indication: Blood cholesterol increased
     Dosage: 140 MILLIGRAM, Q2WK (PRODUCT STRENGTH-140MG)
     Route: 058
     Dates: start: 20250912

REACTIONS (2)
  - Blood growth hormone abnormal [Unknown]
  - Device difficult to use [Unknown]

NARRATIVE: CASE EVENT DATE: 20251024
